FAERS Safety Report 16048253 (Version 1)
Quarter: 2019Q1

REPORT INFORMATION
  Report Type: Spontaneous
  Country: DE (occurrence: DE)
  Receive Date: 20190307
  Receipt Date: 20190307
  Transmission Date: 20190418
  Serious: Yes (Other)
  Sender: FDA-Public Use
  Company Number: DE-BAYER-2019-043269

PATIENT
  Age: 14 Year
  Sex: Female

DRUGS (4)
  1. PETIBELLE [Suspect]
     Active Substance: DROSPIRENONE\ETHINYL ESTRADIOL
     Indication: CONTRACEPTION
     Dosage: 1 DF, QD
     Route: 048
     Dates: start: 2003, end: 2010
  2. WELLNARA [Suspect]
     Active Substance: ESTRADIOL\LEVONORGESTREL
     Indication: OESTROGEN DEFICIENCY
     Dosage: 1 DF, QD
     Route: 048
  3. LEVLEN [Suspect]
     Active Substance: ETHINYL ESTRADIOL\LEVONORGESTREL
     Indication: OESTROGEN DEFICIENCY
     Dosage: 1 DF, QD
     Route: 048
     Dates: start: 201808, end: 20190220
  4. LEVLEN [Suspect]
     Active Substance: ETHINYL ESTRADIOL\LEVONORGESTREL
     Indication: MENSTRUAL CYCLE MANAGEMENT

REACTIONS (4)
  - Off label use [None]
  - Protein S deficiency [Recovered/Resolved]
  - Flatulence [None]
  - Abdominal pain [None]

NARRATIVE: CASE EVENT DATE: 2003
